FAERS Safety Report 10160091 (Version 1)
Quarter: 2014Q2

REPORT INFORMATION
  Report Type: Spontaneous
  Country: US (occurrence: US)
  Receive Date: 20140508
  Receipt Date: 20140508
  Transmission Date: 20141212
  Serious: No
  Sender: FDA-Public Use
  Company Number: US-GLAXOSMITHKLINE-A1064567A

PATIENT
  Age: 55 Year
  Sex: Female

DRUGS (12)
  1. TYKERB [Suspect]
     Indication: BREAST CANCER
     Dosage: 1250MG PER DAY
     Route: 048
     Dates: start: 20110121
  2. AVELOX [Suspect]
     Indication: PRODUCT USED FOR UNKNOWN INDICATION
     Route: 065
  3. TOPROL XL [Suspect]
     Indication: ARRHYTHMIA
     Route: 065
  4. VITAMIN B 12 [Concomitant]
  5. DIAZEPAM [Concomitant]
  6. PENTOXIFYLLINE [Concomitant]
  7. ALAVERT [Concomitant]
  8. MIRTAZAPINE [Concomitant]
  9. CLARITIN D [Concomitant]
  10. CYMBALTA [Concomitant]
  11. VITAMIN C [Concomitant]
  12. LUNESTA [Concomitant]

REACTIONS (2)
  - Palpitations [Not Recovered/Not Resolved]
  - Arrhythmia [Not Recovered/Not Resolved]
